FAERS Safety Report 5966839-6 (Version None)
Quarter: 2008Q4

REPORT INFORMATION
  Report Type: 
  Country: None (occurrence: None)
  Receive Date: 20081119
  Receipt Date: 20080822
  Transmission Date: 20090506
  Serious: No
  Sender: FDA-Public Use
  Company Number: WAES 0808USA04414

PATIENT
  Age: 76 Year
  Sex: Female

DRUGS (8)
  1. JANUVIA [Suspect]
     Indication: TYPE 2 DIABETES MELLITUS
     Dosage: 100 MG/PO
     Route: 048
     Dates: start: 20080816, end: 20080822
  2. BENICAR [Concomitant]
  3. GLUMETA [Concomitant]
  4. VICODIN [Concomitant]
  5. AMLODIPINE BESYLATE [Concomitant]
  6. GLIMEPIRIDE [Concomitant]
  7. HYDROCHLOROTHIAZIDE [Concomitant]
  8. LEVOTHYROXINE SODIUM [Concomitant]

REACTIONS (2)
  - OROPHARYNGEAL PAIN [None]
  - RHINORRHOEA [None]
